FAERS Safety Report 12017262 (Version 1)
Quarter: 2016Q1

REPORT INFORMATION
  Report Type: Report from Study
  Country: US (occurrence: US)
  Receive Date: 20160205
  Receipt Date: 20160205
  Transmission Date: 20160526
  Serious: No
  Sender: FDA-Public Use
  Company Number: US-ABBVIE-15K-163-1454200-00

PATIENT
  Sex: Female

DRUGS (1)
  1. HUMIRA [Suspect]
     Active Substance: ADALIMUMAB
     Indication: CROHN^S DISEASE
     Route: 065

REACTIONS (5)
  - Rhinorrhoea [Unknown]
  - Headache [Unknown]
  - Eye pruritus [Unknown]
  - Seasonal allergy [Not Recovered/Not Resolved]
  - Allergic sinusitis [Not Recovered/Not Resolved]
